FAERS Safety Report 10363546 (Version 1)
Quarter: 2014Q1

REPORT INFORMATION
  Report Type: Spontaneous
  Country: US (occurrence: None)
  Receive Date: 20140306
  Receipt Date: 20140306
  Transmission Date: 20141002
  Serious: Yes (Hospitalization)
  Sender: FDA-Public Use
  Company Number: 163-21880-13061653

PATIENT
  Age: 82 Year
  Sex: Female

DRUGS (2)
  1. REVLIMID (LENALIDOMIDE)(10 MILLIGRAM, CAPSULES) [Suspect]
     Indication: PLASMA CELL MYELOMA
     Dosage: 21 IN 21 D
     Route: 048
     Dates: start: 20130215, end: 201303
  2. AREDIA (PAMIDRONATE DISODIUM) [Concomitant]

REACTIONS (4)
  - White blood cell count decreased [None]
  - Neuropathy peripheral [None]
  - Anaemia [None]
  - Platelet count decreased [None]
